FAERS Safety Report 8840016 (Version 2)
Quarter: 2012Q4

REPORT INFORMATION
  Report Type: 
  Country: US (occurrence: US)
  Receive Date: 20121015
  Receipt Date: 20121102
  Transmission Date: 20130627
  Serious: Yes (Hospitalization)
  Sender: FDA-Public Use
  Company Number: US-PFIZER INC-2012254990

PATIENT
  Age: 77 Year
  Sex: Female

DRUGS (1)
  1. LYRICA [Suspect]
     Indication: DIABETIC PERIPHERAL NEUROPATHIC PAIN
     Dosage: 75mg in the morning and 150mg at night
     Route: 048
     Dates: start: 2008

REACTIONS (1)
  - Myocardial infarction [Recovering/Resolving]
